FAERS Safety Report 25110220 (Version 3)
Quarter: 2025Q4

REPORT INFORMATION
  Report Type: Report from Study
  Country: KR (occurrence: KR)
  Receive Date: 20250324
  Receipt Date: 20251230
  Transmission Date: 20260117
  Serious: Yes (Other)
  Sender: NOVARTIS
  Company Number: KR-002147023-NVSC2025KR048046

PATIENT
  Age: 71 Year
  Sex: Male

DRUGS (6)
  1. BEOVU [Suspect]
     Active Substance: BROLUCIZUMAB-DBLL
     Indication: Neovascular age-related macular degeneration
     Dosage: 6 MG (BEOVU 6MG EVERY 8WEEKS)
     Route: 031
     Dates: start: 20240911, end: 20240911
  2. MOXISTA [Concomitant]
     Indication: Evidence based treatment
     Dosage: 1 DRP (3)
     Route: 065
     Dates: start: 20240911, end: 20240911
  3. PARACAINE [Concomitant]
     Active Substance: PROPARACAINE HYDROCHLORIDE
     Indication: Anaesthesia procedure
     Dosage: UNK
     Route: 065
     Dates: start: 20240911, end: 20240911
  4. OFLOXACIN [Concomitant]
     Active Substance: OFLOXACIN
     Indication: Evidence based treatment
     Dosage: 1 DRP (1, EYE DROP)
     Route: 047
     Dates: start: 20240911, end: 20240911
  5. TORAMICIN [Concomitant]
     Indication: Evidence based treatment
     Dosage: 1 DRP (1, EYE DROP)
     Route: 047
     Dates: start: 20240911, end: 20240911
  6. Tropherin [Concomitant]
     Indication: Mydriasis
     Dosage: UNK
     Route: 065
     Dates: start: 20240911, end: 20241010

REACTIONS (1)
  - Idiopathic orbital inflammation [Recovered/Resolved]

NARRATIVE: CASE EVENT DATE: 20241010
